FAERS Safety Report 14143817 (Version 2)
Quarter: 2018Q2

REPORT INFORMATION
  Report Type: Spontaneous
  Country: FR (occurrence: FR)
  Receive Date: 20171031
  Receipt Date: 20180524
  Transmission Date: 20180711
  Serious: Yes (Other)
  Sender: FDA-Public Use
  Company Number: FR-MERCK KGAA-2032765

PATIENT
  Age: 39 Year
  Sex: Female
  Weight: 85 kg

DRUGS (1)
  1. NOVOTHYROX [Suspect]
     Active Substance: LEVOTHYROXINE SODIUM
     Indication: HYPOTHYROIDISM
     Route: 048
     Dates: start: 20170403, end: 201710

REACTIONS (18)
  - Personal relationship issue [None]
  - Loss of personal independence in daily activities [None]
  - Crying [None]
  - Abdominal pain upper [None]
  - Gastritis [None]
  - Fatigue [Not Recovered/Not Resolved]
  - Impulsive behaviour [None]
  - Muscle spasms [Not Recovered/Not Resolved]
  - Aggression [None]
  - Diarrhoea [None]
  - Insomnia [Not Recovered/Not Resolved]
  - Asthenia [None]
  - Irritability [Not Recovered/Not Resolved]
  - Product formulation issue [Not Recovered/Not Resolved]
  - Impatience [None]
  - Somnolence [None]
  - Diffuse alopecia [Not Recovered/Not Resolved]
  - Headache [None]

NARRATIVE: CASE EVENT DATE: 20170531
